FAERS Safety Report 19205242 (Version 5)
Quarter: 2022Q2

REPORT INFORMATION
  Report Type: Other
  Country: JP (occurrence: JP)
  Receive Date: 20210503
  Receipt Date: 20220610
  Transmission Date: 20220720
  Serious: Yes (Hospitalization, Other)
  Sender: FDA-Public Use
  Company Number: JP-CHUGAI-A2021017670ROCHE

PATIENT
  Age: 64 Year
  Sex: Male
  Weight: 78.5 kg

DRUGS (4)
  1. ATEZOLIZUMAB [Suspect]
     Active Substance: ATEZOLIZUMAB
     Indication: Lung adenocarcinoma
     Dosage: MOST RECENT DOSE OF ATEZOLIZUMB:06/APR/2021
     Route: 041
     Dates: start: 20210406
  2. BEVACIZUMAB [Suspect]
     Active Substance: BEVACIZUMAB
     Indication: Lung adenocarcinoma
     Dosage: MOST RECENT DOSE OF BEVACIZUMAB:06/APR/2021
     Route: 041
     Dates: start: 20210406
  3. CARBOPLATIN [Suspect]
     Active Substance: CARBOPLATIN
     Indication: Lung adenocarcinoma
     Route: 041
     Dates: start: 20210406, end: 20210406
  4. PACLITAXEL [Suspect]
     Active Substance: PACLITAXEL
     Indication: Lung adenocarcinoma
     Route: 041
     Dates: start: 20210406, end: 20210406

REACTIONS (5)
  - Thrombosis [Unknown]
  - Encephalitis [Recovering/Resolving]
  - Meningitis [Recovering/Resolving]
  - Guillain-Barre syndrome [Unknown]
  - Febrile neutropenia [Recovered/Resolved]

NARRATIVE: CASE EVENT DATE: 20210414
